FAERS Safety Report 13815781 (Version 3)
Quarter: 2017Q4

REPORT INFORMATION
  Report Type: Spontaneous
  Country: IL (occurrence: IL)
  Receive Date: 20170731
  Receipt Date: 20171025
  Transmission Date: 20180320
  Serious: Yes (Death, Other)
  Sender: FDA-Public Use
  Company Number: IL-GILEAD-2017-0285163

PATIENT
  Age: 62 Year
  Sex: Male

DRUGS (6)
  1. CILAZAPRIL [Concomitant]
     Active Substance: CILAZAPRIL ANHYDROUS
  2. FUROSEMIDE. [Concomitant]
     Active Substance: FUROSEMIDE
  3. HARVONI [Suspect]
     Active Substance: LEDIPASVIR\SOFOSBUVIR
     Indication: CHRONIC HEPATITIS C
     Dosage: UNK
     Route: 065
     Dates: start: 201605, end: 201610
  4. INSULIN HUMAN [Concomitant]
     Active Substance: INSULIN HUMAN
  5. PROPRANOLOL [Concomitant]
     Active Substance: PROPRANOLOL HYDROCHLORIDE
  6. L-THYROXINE                        /00068001/ [Concomitant]
     Active Substance: LEVOTHYROXINE

REACTIONS (6)
  - Hepatic encephalopathy [Not Recovered/Not Resolved]
  - Post procedural haemorrhage [Fatal]
  - Hepatic failure [Recovered/Resolved]
  - Hepatic encephalopathy [Recovered/Resolved]
  - Hepatic failure [Not Recovered/Not Resolved]
  - Gastroenteritis [Recovered/Resolved]

NARRATIVE: CASE EVENT DATE: 2016
